FAERS Safety Report 7612138-6 (Version None)
Quarter: 2011Q3

REPORT INFORMATION
  Report Type: 
  Country: None (occurrence: None)
  Receive Date: 20110715
  Receipt Date: 20110708
  Transmission Date: 20111222
  Serious: Yes (Hospitalization, Other)
  Sender: FDA-Public Use
  Company Number: NZ-ABBOTT-11P-118-0719279-02

PATIENT
  Sex: Male
  Weight: 60 kg

DRUGS (19)
  1. BUDESONIDE [Concomitant]
     Indication: CROHN'S DISEASE
     Dates: start: 20091027, end: 20100128
  2. PREDNISONE [Concomitant]
     Dates: start: 20100128, end: 20100429
  3. CLONIDINE [Concomitant]
     Indication: HYPERTENSION
     Route: 061
     Dates: start: 20091027
  4. MORPHINE SULFATE [Concomitant]
     Indication: ABDOMINAL PAIN
     Dosage: 10 TO 20 MG
     Dates: start: 20100728, end: 20110705
  5. CHOLECALCIFEROL [Concomitant]
     Indication: BONE DENSITY ABNORMAL
     Dates: start: 20101112
  6. HUMIRA [Suspect]
     Route: 058
  7. ENSURE [Concomitant]
     Indication: MEDICAL DIET
     Dates: start: 20091027
  8. MORPHINE [Concomitant]
     Indication: ABDOMINAL PAIN
     Dosage: 10-20 MG EVERY 30 MINS.
     Dates: start: 20091030
  9. ACETAMINOPHEN [Concomitant]
     Indication: ABDOMINAL PAIN
     Dosage: AS REQUIRED
     Dates: start: 20091027
  10. PREDNISONE [Concomitant]
     Dates: start: 20100429, end: 20110413
  11. HUMIRA [Suspect]
     Indication: CROHN'S DISEASE
     Route: 058
     Dates: start: 20091009, end: 20091009
  12. METHADONE HCL [Concomitant]
     Indication: ABDOMINAL PAIN
     Dosage: 15-20 MG
     Dates: start: 20091027
  13. BUDESONIDE [Concomitant]
     Dates: start: 20100128, end: 20110429
  14. PREDNISONE [Concomitant]
     Indication: LOWER RESPIRATORY TRACT INFECTION
     Dates: start: 20091102
  15. PREDNISONE [Concomitant]
     Dates: start: 20100127
  16. LACTULOSE [Concomitant]
     Indication: CONSTIPATION PROPHYLAXIS
     Dosage: 20-40 ML AS REQUIRED
     Dates: start: 20091029
  17. HUMIRA [Suspect]
     Route: 058
     Dates: start: 20091023
  18. GABAPENTIN [Concomitant]
     Indication: ABDOMINAL PAIN
     Dosage: 300 TO 900 MG
     Dates: start: 20091027
  19. PREDNISONE [Concomitant]
     Indication: CROHN'S DISEASE
     Dates: start: 20091027, end: 20091102

REACTIONS (1)
  - LOWER RESPIRATORY TRACT INFECTION [None]
